FAERS Safety Report 19105062 (Version 1)
Quarter: 2021Q2

REPORT INFORMATION
  Report Type: Spontaneous
  Country: US (occurrence: US)
  Receive Date: 20210408
  Receipt Date: 20210408
  Transmission Date: 20210717
  Serious: Yes (Other)
  Sender: FDA-Public Use
  Company Number: US-SA-2021SA113871

PATIENT
  Age: 41 Year
  Sex: Female

DRUGS (2)
  1. ZANTAC [Suspect]
     Active Substance: RANITIDINE HYDROCHLORIDE
     Indication: DYSPEPSIA
     Dosage: 75 MG, QW
  2. ZANTAC [Suspect]
     Active Substance: RANITIDINE HYDROCHLORIDE
     Dosage: 150 MG

REACTIONS (4)
  - Hepatic cancer stage IV [Unknown]
  - Appendix cancer [Recovering/Resolving]
  - Colorectal cancer stage IV [Unknown]
  - Gallbladder cancer stage IV [Recovering/Resolving]

NARRATIVE: CASE EVENT DATE: 20200101
